FAERS Safety Report 17793985 (Version 1)
Quarter: 2020Q2

REPORT INFORMATION
  Report Type: Spontaneous
  Country: DE (occurrence: DE)
  Receive Date: 20200515
  Receipt Date: 20200515
  Transmission Date: 20200714
  Serious: Yes (Hospitalization)
  Sender: FDA-Public Use
  Company Number: DE-TEVA-2020-DE-1234381

PATIENT
  Age: 75 Year
  Sex: Female
  Weight: 150 kg

DRUGS (13)
  1. ATORVASTATIN [Concomitant]
     Active Substance: ATORVASTATIN
     Dosage: 40 MILLIGRAM DAILY;  0-0-1-0
  2. LIXIANA [Concomitant]
     Active Substance: EDOXABAN TOSYLATE
     Dosage: 30 MILLIGRAM DAILY; , 1-0-0-0
  3. VIGANTOL 1000I.E. VITAMIN D3 [Concomitant]
     Dosage: 1000 IE, 1-0-0-0
  4. IMODIUM AKUT [Concomitant]
     Active Substance: LOPERAMIDE
  5. AMLODIPIN [Concomitant]
     Active Substance: AMLODIPINE BESYLATE
     Dosage: 5 MILLIGRAM DAILY;  1-0-0-0
  6. TAVOR 1,0MG EXPIDET [Concomitant]
     Dosage: 1 MG,
  7. BISOPROLOL [Suspect]
     Active Substance: BISOPROLOL
     Dosage: 10 MILLIGRAM DAILY;  1-0-1-0
  8. ENTRESTO [Concomitant]
     Active Substance: SACUBITRIL\VALSARTAN
     Dosage: 24|26 MG, 1-0-1-0
  9. PANTOPRAZOL [Concomitant]
     Active Substance: PANTOPRAZOLE SODIUM
     Dosage: 40 MILLIGRAM DAILY;  1-0-0-0
  10. TORASEMID AL 10MG [Concomitant]
     Dosage: 20 MILLIGRAM DAILY; 2-0-0-0
  11. TILIDIN AL COMP. 50MG/4MG [Concomitant]
     Dosage: 50|4 MG, 1-0-1-0
  12. NOVALGIN [Concomitant]
  13. ZOPICLON AXCOUNT 3,75MG [Concomitant]

REACTIONS (9)
  - Blood pressure increased [Unknown]
  - Oedema peripheral [Unknown]
  - Musculoskeletal pain [Unknown]
  - Wound [Unknown]
  - Skin ulcer [Unknown]
  - Weight increased [Unknown]
  - Atrial flutter [Unknown]
  - Heart rate increased [Unknown]
  - Localised infection [Unknown]
